FAERS Safety Report 8770826 (Version 1)
Quarter: 2012Q4

REPORT INFORMATION
  Report Type: 
  Country: CH (occurrence: CH)
  Receive Date: 20120906
  Receipt Date: 20120906
  Transmission Date: 20130627
  Serious: Yes (Hospitalization)
  Sender: FDA-Public Use
  Company Number: CH-PFIZER INC-2012217105

PATIENT
  Age: 87 Year
  Sex: Male

DRUGS (6)
  1. TRIATEC [Suspect]
     Indication: ESSENTIAL HYPERTENSION
     Dosage: 5mg, daily
     Route: 048
     Dates: start: 2009, end: 20120521
  2. JANUVIA [Suspect]
     Indication: TYPE 2 DIABETES MELLITUS
     Dosage: UNK
     Route: 048
     Dates: end: 20120520
  3. TOREM [Suspect]
     Indication: ESSENTIAL HYPERTENSION
     Dosage: 10 mg, twice daily
     Route: 048
     Dates: start: 2009, end: 20120520
  4. MARCOUMAR [Suspect]
     Indication: PRODUCT USED FOR UNKNOWN INDICATION
     Dosage: 3 mg, as needed
     Route: 048
     Dates: end: 20120520
  5. ALDACTONE [Concomitant]
     Dosage: UNK
  6. GLUCOPHAGE [Concomitant]
     Dosage: UNK
     Dates: start: 20120520

REACTIONS (2)
  - International normalised ratio increased [Recovering/Resolving]
  - Pancreatitis acute [Recovering/Resolving]
